FAERS Safety Report 7791486-3 (Version None)
Quarter: 2011Q4

REPORT INFORMATION
  Report Type: 
  Country: None (occurrence: None)
  Receive Date: 20111003
  Receipt Date: 20110920
  Transmission Date: 20120403
  Serious: Yes (Other)
  Sender: FDA-Public Use
  Company Number: CN-JNJFOC-20110909558

PATIENT
  Age: 29 Year
  Sex: Male

DRUGS (3)
  1. INFLIXIMAB, RECOMBINANT [Suspect]
     Indication: ANKYLOSING SPONDYLITIS
     Route: 042
  2. PREDNISONE [Concomitant]
     Indication: UVEITIS
     Dosage: 15-25MG
     Route: 048
  3. CYCLOPHOSPHAMIDE [Concomitant]
     Indication: UVEITIS
     Dosage: 200-400MG
     Route: 048

REACTIONS (1)
  - TUBERCULOUS PLEURISY [None]
